FAERS Safety Report 6045479-7 (Version None)
Quarter: 2009Q1

REPORT INFORMATION
  Report Type: 
  Country: None (occurrence: None)
  Receive Date: 20090121
  Receipt Date: 20080512
  Transmission Date: 20090719
  Serious: No
  Sender: FDA-Public Use
  Company Number: US-KINGPHARMUSA00001-K200800546

PATIENT
  Sex: Male

DRUGS (1)
  1. PROCANBID [Suspect]
     Indication: ARRHYTHMIA
     Dosage: 1000 MG 8 TIMES PER DAY
     Dates: start: 19980101

REACTIONS (1)
  - DRUG INEFFECTIVE [None]
